FAERS Safety Report 21664403 (Version 2)
Quarter: 2022Q4

REPORT INFORMATION
  Report Type: Report from Study
  Country: US (occurrence: US)
  Receive Date: 20221130
  Receipt Date: 20221205
  Transmission Date: 20230112
  Serious: No
  Sender: FDA-Public Use
  Company Number: US-002147023-NVSC2022US278326

PATIENT
  Age: 64 Year
  Sex: Male
  Weight: 95.71 kg

DRUGS (1)
  1. ENTRESTO [Suspect]
     Active Substance: SACUBITRIL\VALSARTAN
     Indication: Cardiac failure congestive
     Dosage: 1 DOSAGE FORM, BID (24/26 MG)
     Route: 048
     Dates: start: 20220131

REACTIONS (3)
  - Upper respiratory tract infection [Not Recovered/Not Resolved]
  - Upper-airway cough syndrome [Unknown]
  - Cough [Unknown]

NARRATIVE: CASE EVENT DATE: 20221101
